FAERS Safety Report 24962747 (Version 1)
Quarter: 2025Q1

REPORT INFORMATION
  Report Type: Spontaneous
  Country: FR (occurrence: FR)
  Receive Date: 20250212
  Receipt Date: 20250212
  Transmission Date: 20250409
  Serious: Yes (Other)
  Sender: ALEXION PHARMACEUTICALS
  Company Number: None

PATIENT
  Age: 4 Month

DRUGS (1)
  1. NIRSEVIMAB [Suspect]
     Active Substance: NIRSEVIMAB
     Indication: Antiviral prophylaxis

REACTIONS (2)
  - Bronchiolitis [Not Recovered/Not Resolved]
  - Drug ineffective [Unknown]
